FAERS Safety Report 5866032-1 (Version None)
Quarter: 2008Q3

REPORT INFORMATION
  Report Type: 
  Country: None (occurrence: None)
  Receive Date: 20080829
  Receipt Date: 20080818
  Transmission Date: 20090109
  Serious: Yes (Other)
  Sender: FDA-Public Use
  Company Number: NL-AMGEN-US304653

PATIENT
  Age: 40 Year
  Sex: Male

DRUGS (6)
  1. ENBREL [Suspect]
     Indication: ANKYLOSING SPONDYLITIS
     Route: 058
     Dates: start: 20051201
  2. ISONIAZID [Concomitant]
     Dosage: UNK
     Route: 065
  3. ZOLOFT [Concomitant]
     Route: 065
  4. OMEPRAZOLE [Concomitant]
     Route: 065
  5. TRAMADOL HCL [Concomitant]
     Route: 065
  6. DICLOFENAC [Concomitant]
     Dosage: UNK
     Route: 065

REACTIONS (1)
  - ALANINE AMINOTRANSFERASE INCREASED [None]
